FAERS Safety Report 26215482 (Version 1)
Quarter: 2025Q4

REPORT INFORMATION
  Report Type: Spontaneous
  Country: EG (occurrence: EG)
  Receive Date: 20251231
  Receipt Date: 20251231
  Transmission Date: 20260117
  Serious: Yes (Hospitalization, Other)
  Sender: HIKMA
  Company Number: EG-HIKMA PHARMACEUTICALS-EG-H14001-25-13893

PATIENT
  Age: 62 Year
  Sex: Male

DRUGS (5)
  1. GEMCITABINE HYDROCHLORIDE [Suspect]
     Active Substance: GEMCITABINE HYDROCHLORIDE
     Indication: Pancreatic carcinoma
     Dosage: 1600 MILLIGRAM, 3W DAY 1 (OVER 60 MINUTES) (DOSE TWO)
     Dates: start: 20250906
  2. OXALIPLATIN [Suspect]
     Active Substance: OXALIPLATIN
     Indication: Pancreatic carcinoma
     Dosage: 136 MILLIGRAM, 3W OVER 60 MINUTES
  3. OXALIPLATIN [Suspect]
     Active Substance: OXALIPLATIN
     Dosage: 136 MILLIGRAM, 3W OVER 60 MINUTES (DAY 2)
     Dates: start: 20250906
  4. DEXAMETHASONE [Concomitant]
     Active Substance: DEXAMETHASONE
     Indication: Chemotherapy side effect prophylaxis
     Dosage: OVER 30 MINUTES
  5. GRANITRYL [Concomitant]
     Indication: Chemotherapy side effect prophylaxis
     Dosage: UNK OVER 30 MINUTES

REACTIONS (9)
  - Ascites [Not Recovered/Not Resolved]
  - Hypochromic anaemia [Not Recovered/Not Resolved]
  - Abdominal pain [Recovered/Resolved]
  - Calcium ionised decreased [Not Recovered/Not Resolved]
  - Hypoalbuminaemia [Not Recovered/Not Resolved]
  - Blood urea increased [Not Recovered/Not Resolved]
  - Blood creatinine increased [Not Recovered/Not Resolved]
  - Dyspnoea [Recovered/Resolved]
  - Pyrexia [Recovered/Resolved]

NARRATIVE: CASE EVENT DATE: 20250920
